FAERS Safety Report 8406711 (Version 4)
Quarter: 2013Q2

REPORT INFORMATION
  Report Type: Report from Study
  Country: NL (occurrence: NL)
  Receive Date: 20120215
  Receipt Date: 20130429
  Transmission Date: 20140414
  Serious: Yes (Death, Hospitalization)
  Sender: FDA-Public Use
  Company Number: NL-ROCHE-1035426

PATIENT
  Age: 75 Year
  Sex: Male
  Weight: 61 kg

DRUGS (11)
  1. RITUXIMAB [Suspect]
     Indication: DIFFUSE LARGE B-CELL LYMPHOMA
     Dosage: MOST RECENT DOSE PRIOR TO SAE 27/DEC/2011
     Route: 042
     Dates: start: 20111220
  2. PEGFILGRASTIM [Suspect]
     Indication: DIFFUSE LARGE B-CELL LYMPHOMA
     Dosage: MOST RECENT DOE PRIOR TO SAE:21/DEC/2011
     Route: 058
     Dates: start: 20111221
  3. PREDNISONE [Suspect]
     Indication: DIFFUSE LARGE B-CELL LYMPHOMA
     Dosage: MOST RECENT DOSE PRIOR TO SAE 24/DEC/2011
     Route: 048
     Dates: start: 20111220
  4. CYCLOPHOSPHAMIDE [Suspect]
     Indication: DIFFUSE LARGE B-CELL LYMPHOMA
     Dosage: MOST RECENT DOSE PRIOR TO SAE 20/DEC/2011
     Route: 042
     Dates: start: 20111220
  5. DOXORUBICINE [Suspect]
     Indication: DIFFUSE LARGE B-CELL LYMPHOMA
     Dosage: MOST RECENT DOSE PRIOR TO SAE 20/DEC/2011
     Route: 042
     Dates: start: 20111220
  6. VINCRISTINE [Suspect]
     Indication: DIFFUSE LARGE B-CELL LYMPHOMA
     Dosage: MOST RECENT DOSE PRIOR TO SAE 20/DEC/2011
     Route: 042
     Dates: start: 20111220
  7. PARACETAMOL [Concomitant]
     Indication: PAIN
     Dosage: 500
     Route: 065
     Dates: start: 20111115, end: 20111230
  8. COLCHICINE [Concomitant]
     Indication: GOUT
     Route: 048
     Dates: start: 2011, end: 20111230
  9. PANTOPRAZOL [Concomitant]
     Route: 048
     Dates: start: 2011, end: 20111230
  10. MOVICOLON [Concomitant]
     Indication: CONSTIPATION
     Dosage: CACHET, MOST RECENT DOSE PRIOR TO SAE 27/JAN/2012
     Route: 048
     Dates: start: 20110126
  11. OXAZEPAM [Concomitant]
     Indication: SEDATION
     Dosage: MOST RECENT DOSE PRIOR TO SAE 27/JAN/2012
     Route: 048
     Dates: start: 20120126

REACTIONS (2)
  - Pneumonia [Fatal]
  - Pulmonary embolism [Recovered/Resolved]
